FAERS Safety Report 7997611-3 (Version None)
Quarter: 2011Q4

REPORT INFORMATION
  Report Type: 
  Country: None (occurrence: None)
  Receive Date: 20111221
  Receipt Date: 20111212
  Transmission Date: 20120403
  Serious: Yes (Hospitalization)
  Sender: FDA-Public Use
  Company Number: US-JNJFOC-20111012221

PATIENT
  Sex: Female
  Weight: 36.6 kg

DRUGS (11)
  1. PREDNISONE TAB [Concomitant]
  2. FISH OIL [Concomitant]
  3. METHOTREXATE [Suspect]
     Indication: PRODUCT USED FOR UNKNOWN INDICATION
  4. FOLIC ACID [Concomitant]
  5. A MULTIVITAMIN [Concomitant]
  6. ANTIBIOTICS [Concomitant]
     Indication: INFLAMMATORY BOWEL DISEASE
  7. PREVACID [Concomitant]
  8. HUMIRA [Suspect]
     Indication: PRODUCT USED FOR UNKNOWN INDICATION
     Dates: start: 20090218
  9. PEPTAMEN [Concomitant]
  10. INFLIXIMAB, RECOMBINANT [Suspect]
     Indication: INFLAMMATORY BOWEL DISEASE
     Route: 042
     Dates: start: 20080205, end: 20090114
  11. CHOLECALCIFEROL [Concomitant]

REACTIONS (1)
  - INTESTINAL STENOSIS [None]
